FAERS Safety Report 6961518-0 (Version None)
Quarter: 2010Q3

REPORT INFORMATION
  Report Type: 
  Country: None (occurrence: None)
  Receive Date: 20100823
  Receipt Date: 20100423
  Transmission Date: 20110219
  Serious: No
  Sender: FDA-Public Use
  Company Number: 005913

PATIENT
  Sex: Male

DRUGS (2)
  1. CIMZIA [Suspect]
     Indication: CROHN'S DISEASE
     Dosage: (400 MG SUBCUTANEOUS)
     Route: 058
     Dates: start: 20090527
  2. CIMZIA [Suspect]
     Dosage: (400 MG SUBCUTANEOUS)
     Route: 058

REACTIONS (1)
  - ABDOMINAL PAIN LOWER [None]
